FAERS Safety Report 5786209-3 (Version None)
Quarter: 2008Q2

REPORT INFORMATION
  Report Type: 
  Country: None (occurrence: None)
  Receive Date: 20080624
  Receipt Date: 20080623
  Transmission Date: 20081010
  Serious: Yes (Hospitalization)
  Sender: FDA-Public Use
  Company Number: FR-WYE-G01744508

PATIENT
  Sex: Female

DRUGS (2)
  1. ADVIL [Suspect]
     Indication: PAIN
     Route: 048
     Dates: start: 20080531, end: 20080604
  2. KETOPROFEN [Suspect]
     Indication: PAIN
     Route: 048
     Dates: start: 20080601, end: 20080604

REACTIONS (5)
  - AGRANULOCYTOSIS [None]
  - ASTHENIA [None]
  - GRANULOCYTES MATURATION ARREST [None]
  - PYREXIA [None]
  - TONSILLITIS [None]
